FAERS Safety Report 10436538 (Version 2)
Quarter: 2014Q3

REPORT INFORMATION
  Report Type: Spontaneous
  Country: US (occurrence: US)
  Receive Date: 20140908
  Receipt Date: 20140908
  Transmission Date: 20150326
  Serious: No
  Sender: FDA-Public Use
  Company Number: US-BRISTOL-MYERS SQUIBB COMPANY-20203980

PATIENT
  Age: 55 Year
  Sex: Female
  Weight: 69.84 kg

DRUGS (1)
  1. ABILIFY [Suspect]
     Active Substance: ARIPIPRAZOLE
     Indication: DEPRESSION
     Dates: start: 2014

REACTIONS (4)
  - Diarrhoea [Unknown]
  - Insomnia [Unknown]
  - Weight increased [Unknown]
  - Malaise [Unknown]
